FAERS Safety Report 22253307 (Version 3)
Quarter: 2023Q2

REPORT INFORMATION
  Report Type: Spontaneous
  Country: US (occurrence: US)
  Receive Date: 20230426
  Receipt Date: 20230508
  Transmission Date: 20230722
  Serious: Yes (Other)
  Sender: FDA-Public Use
  Company Number: US-009507513-2304USA009096

PATIENT
  Age: 61 Year
  Sex: Female
  Weight: 135 kg

DRUGS (14)
  1. KEYTRUDA [Suspect]
     Active Substance: PEMBROLIZUMAB
     Indication: Triple negative breast cancer
     Dosage: EVERY 3 WEEKS
     Route: 042
     Dates: start: 202207
  2. KEYTRUDA [Suspect]
     Active Substance: PEMBROLIZUMAB
     Dosage: UNK
     Dates: start: 20230214
  3. KEYTRUDA [Suspect]
     Active Substance: PEMBROLIZUMAB
     Dosage: UNK
     Dates: start: 20230314
  4. CYCLOPHOSPHAMIDE [Suspect]
     Active Substance: CYCLOPHOSPHAMIDE
  5. ADRIAMYCIN [Suspect]
     Active Substance: DOXORUBICIN HYDROCHLORIDE
  6. XANAX [Concomitant]
     Active Substance: ALPRAZOLAM
     Dosage: 05.MG AS NEEDED
  7. GABAPENTIN [Concomitant]
     Active Substance: GABAPENTIN
     Dosage: 400MG THREE TIMES DAILY
  8. NAPROXEN [Concomitant]
     Active Substance: NAPROXEN
     Dosage: 400 MG TWICE DAILY
  9. SYNTHROID [Concomitant]
     Active Substance: LEVOTHYROXINE SODIUM
     Dosage: 75 MICROGRAMS DAILY
  10. DOXEPIN [Concomitant]
     Active Substance: DOXEPIN
     Dosage: 10MG AT NIGHT
  11. MORPHINE [Concomitant]
     Active Substance: MORPHINE
     Dosage: 15MG TWICE DAILY
  12. HYDROCODONE [Concomitant]
     Active Substance: HYDROCODONE
     Dosage: 10MG TABLETS AS NEEDED
     Route: 048
  13. METHOCARBAMOL [Concomitant]
     Active Substance: METHOCARBAMOL
     Dosage: 150MG 4 TIMES A DAY
  14. LIDODERM [Concomitant]
     Active Substance: LIDOCAINE
     Dosage: PATCH

REACTIONS (5)
  - Chemotherapy [Unknown]
  - Alopecia [Not Recovered/Not Resolved]
  - Pruritus [Unknown]
  - Urticaria [Recovered/Resolved]
  - Acquired gene mutation [Unknown]

NARRATIVE: CASE EVENT DATE: 20220701
